FAERS Safety Report 14955800 (Version 1)
Quarter: 2018Q2

REPORT INFORMATION
  Report Type: Spontaneous
  Country: CN (occurrence: CN)
  Receive Date: 20180531
  Receipt Date: 20180531
  Transmission Date: 20180711
  Serious: Yes (Other)
  Sender: FDA-Public Use
  Company Number: CN-RICON PHARMA, LLC-RIC201805-000485

PATIENT
  Age: 48 Year
  Sex: Female

DRUGS (8)
  1. GLYCERYL TRINITRATE [Concomitant]
     Active Substance: NITROGLYCERIN
     Route: 060
  2. TRIAMCINOLONE ACETONIDE. [Suspect]
     Active Substance: TRIAMCINOLONE ACETONIDE
     Indication: ENDOCRINE OPHTHALMOPATHY
  3. CARTEOLOL [Concomitant]
     Active Substance: CARTEOLOL
  4. ALPHAGAN P [Concomitant]
     Active Substance: BRIMONIDINE TARTRATE
  5. ANISODINE [Concomitant]
  6. BRINZOLAMIDE [Concomitant]
     Active Substance: BRINZOLAMIDE
  7. ALPROSTADIL. [Concomitant]
     Active Substance: ALPROSTADIL
  8. GINATON [Concomitant]

REACTIONS (5)
  - Eye swelling [Recovered/Resolved]
  - Eye pain [Recovered/Resolved]
  - Drug administration error [Unknown]
  - Retinal artery occlusion [Recovered/Resolved]
  - Blindness [Recovered/Resolved]
